FAERS Safety Report 12134130 (Version 4)
Quarter: 2016Q1

REPORT INFORMATION
  Report Type: Report from Study
  Country: ES (occurrence: ES)
  Receive Date: 20160301
  Receipt Date: 20160317
  Transmission Date: 20160526
  Serious: Yes (Hospitalization)
  Sender: FDA-Public Use
  Company Number: ES-GLAXOSMITHKLINE-ES2016028717

PATIENT
  Age: 64 Year
  Sex: Male
  Weight: 76 kg

DRUGS (4)
  1. FLUTICASONE FUROATE + VILANTEROL TRIFENATATE [Suspect]
     Active Substance: FLUTICASONE FUROATE\VILANTEROL TRIFENATATE
     Indication: CHRONIC OBSTRUCTIVE PULMONARY DISEASE
     Dosage: 100/25 UG, QD
     Route: 055
     Dates: start: 20151217
  2. HIBOR [Concomitant]
     Active Substance: BEMIPARIN SODIUM
     Indication: THROMBOSIS PROPHYLAXIS
     Dosage: 3500 IU, 1D
     Route: 058
     Dates: start: 20160226, end: 20160305
  3. PANTOPRAZOL [Concomitant]
     Active Substance: PANTOPRAZOLE SODIUM
     Indication: PROPHYLAXIS
     Dosage: 40 MG, 1D
     Route: 042
     Dates: start: 20160226, end: 20160305
  4. HIBOR [Concomitant]
     Active Substance: BEMIPARIN SODIUM
     Indication: ENCEPHALITIS AUTOIMMUNE

REACTIONS (1)
  - Chronic obstructive pulmonary disease [Recovered/Resolved]

NARRATIVE: CASE EVENT DATE: 20151226
